FAERS Safety Report 24927772 (Version 1)
Quarter: 2025Q1

REPORT INFORMATION
  Report Type: Spontaneous
  Country: US (occurrence: US)
  Receive Date: 20250205
  Receipt Date: 20250205
  Transmission Date: 20250409
  Serious: No
  Sender: AMGEN
  Company Number: US-KYOWAKIRIN-2025KK001689

PATIENT

DRUGS (2)
  1. FILGRASTIM [Suspect]
     Active Substance: FILGRASTIM
     Indication: Haematological malignancy
     Route: 065
  2. PEGFILGRASTIM [Suspect]
     Active Substance: PEGFILGRASTIM
     Indication: Haematological malignancy
     Route: 065

REACTIONS (1)
  - Neutrophilic dermatosis [Unknown]
